FAERS Safety Report 4722347-1 (Version None)
Quarter: 2005Q3

REPORT INFORMATION
  Report Type: 
  Country: None (occurrence: None)
  Receive Date: 20050722
  Receipt Date: 20050303
  Transmission Date: 20060218
  Serious: No
  Sender: FDA-Public Use
  Company Number: US-GLAXOSMITHKLINE-A0548232A

PATIENT
  Sex: Female

DRUGS (13)
  1. AVANDIA [Suspect]
     Dosage: 4MG PER DAY
     Route: 048
     Dates: start: 20021201
  2. FLONASE [Suspect]
     Indication: DRUG USE FOR UNKNOWN INDICATION
     Dosage: 50MCG PER DAY
     Route: 045
  3. ZANTAC [Suspect]
     Indication: DRUG USE FOR UNKNOWN INDICATION
     Route: 048
     Dates: start: 19920101
  4. STARLIX [Concomitant]
  5. FLONASE [Concomitant]
  6. ZYRTEC [Concomitant]
  7. DITROPAN XL [Concomitant]
  8. CORTEF [Concomitant]
  9. LEVOTHYROXINE SODIUM [Concomitant]
  10. COPAXONE [Concomitant]
  11. BACLOFEN [Concomitant]
  12. PROVIGIL [Concomitant]
  13. ALBUTEROL [Concomitant]

REACTIONS (4)
  - BLOOD GLUCOSE FLUCTUATION [None]
  - DRUG EXPOSURE DURING PREGNANCY [None]
  - IRRITABILITY [None]
  - NASAL DISCOMFORT [None]
